FAERS Safety Report 9010455 (Version 3)
Quarter: 2013Q3

REPORT INFORMATION
  Report Type: Spontaneous
  Country: US (occurrence: US)
  Receive Date: 20130109
  Receipt Date: 20130829
  Transmission Date: 20140515
  Serious: Yes (Death, Hospitalization, Disabling, Other)
  Sender: FDA-Public Use
  Company Number: US-009507513-1301USA002421

PATIENT
  Sex: Male
  Weight: 65.31 kg

DRUGS (6)
  1. JANUVIA [Suspect]
     Indication: TYPE 2 DIABETES MELLITUS
     Dosage: 100 MG, QD
     Route: 048
     Dates: start: 2007, end: 201012
  2. JANUMET [Suspect]
     Dosage: UNK
     Route: 048
     Dates: start: 2007, end: 201012
  3. BYETTA [Suspect]
     Dosage: UNK
     Dates: start: 2007, end: 201012
  4. BYDUREON [Suspect]
     Dosage: UNK
     Dates: start: 2007, end: 201012
  5. VICTOZA [Suspect]
     Dosage: UNK
     Dates: start: 2007, end: 201012
  6. TRADJENTA [Suspect]
     Dosage: UNK
     Dates: start: 2007, end: 201012

REACTIONS (12)
  - Pancreatic carcinoma metastatic [Fatal]
  - Cholecystectomy [Unknown]
  - Pancreaticoduodenectomy [Unknown]
  - Radiotherapy [Unknown]
  - Biopsy pancreas [Unknown]
  - Biopsy liver [Unknown]
  - Pneumonia [Unknown]
  - Benign prostatic hyperplasia [Unknown]
  - Oedema peripheral [Unknown]
  - Atrial fibrillation [Unknown]
  - Gout [Unknown]
  - Back pain [Unknown]
